FAERS Safety Report 18961733 (Version 1)
Quarter: 2021Q1

REPORT INFORMATION
  Report Type: Spontaneous
  Country: FR (occurrence: FR)
  Receive Date: 20210303
  Receipt Date: 20210303
  Transmission Date: 20210420
  Serious: Yes (Other)
  Sender: FDA-Public Use
  Company Number: FR-BRISTOL-MYERS SQUIBB COMPANY-BMS-2021-016831

PATIENT
  Age: 45 Year
  Sex: Female
  Weight: 130 kg

DRUGS (3)
  1. KENACORT [Suspect]
     Active Substance: TRIAMCINOLONE
     Indication: PRODUCT USED FOR UNKNOWN INDICATION
     Dosage: ROUTE: KNEE INFILTRATION
     Route: 065
  2. COUMADINE [Interacting]
     Active Substance: WARFARIN SODIUM
     Dosage: 12 MILLIGRAM
     Route: 065
  3. COUMADINE [Interacting]
     Active Substance: WARFARIN SODIUM
     Indication: PRODUCT USED FOR UNKNOWN INDICATION
     Dosage: 5 MILLIGRAM
     Route: 065

REACTIONS (4)
  - International normalised ratio decreased [Unknown]
  - Off label use [Unknown]
  - Drug interaction [Unknown]
  - Pulmonary embolism [Unknown]
